FAERS Safety Report 23464123 (Version 1)
Quarter: 2024Q1

REPORT INFORMATION
  Report Type: Spontaneous
  Country: US (occurrence: US)
  Receive Date: 20240201
  Receipt Date: 20240201
  Transmission Date: 20240409
  Serious: No
  Sender: FDA-Public Use
  Company Number: US-SA-SAC20240125000234

PATIENT
  Age: 55 Year
  Sex: Female

DRUGS (12)
  1. DUPIXENT [Suspect]
     Active Substance: DUPILUMAB
     Indication: Asthma
     Dosage: 300 MG, QOW
     Route: 058
     Dates: start: 20201223
  2. ALBUTEROL SULFATE [Concomitant]
     Active Substance: ALBUTEROL SULFATE
  3. AZITHROMYCIN [Concomitant]
     Active Substance: AZITHROMYCIN
  4. CLONAZEPAM [Concomitant]
     Active Substance: CLONAZEPAM
  5. ESTRADIOL [Concomitant]
     Active Substance: ESTRADIOL
  6. POTASSIUM CHLORIDE [Concomitant]
     Active Substance: POTASSIUM CHLORIDE
  7. PREGABALIN [Concomitant]
     Active Substance: PREGABALIN
  8. PROMETHAZINE [Concomitant]
     Active Substance: PROMETHAZINE HYDROCHLORIDE
  9. RIZATRIPTAN [Concomitant]
     Active Substance: RIZATRIPTAN
  10. CYCLOBENZAPRINE [Concomitant]
     Active Substance: CYCLOBENZAPRINE
  11. DESVENLAFAXINE [Concomitant]
     Active Substance: DESVENLAFAXINE
  12. HYDROXYZINE HYDROCHLORIDE [Concomitant]
     Active Substance: HYDROXYZINE HYDROCHLORIDE

REACTIONS (3)
  - Pain [Unknown]
  - Product dose omission in error [Unknown]
  - Foot operation [Unknown]
